FAERS Safety Report 5141366-7 (Version None)
Quarter: 2006Q4

REPORT INFORMATION
  Report Type: 
  Country: None (occurrence: None)
  Receive Date: 20061101
  Receipt Date: 20050627
  Transmission Date: 20070319
  Serious: Yes (Other)
  Sender: FDA-Public Use
  Company Number: US-GLAXOSMITHKLINE-A0564306A

PATIENT
  Age: 68 Year
  Sex: Male

DRUGS (7)
  1. AVANDIA [Suspect]
     Indication: DIABETES MELLITUS NON-INSULIN-DEPENDENT
     Dosage: 4MG PER DAY
     Route: 048
  2. LOTRIMIN [Concomitant]
  3. METFORMIN HCL [Concomitant]
     Dosage: 850MG THREE TIMES PER DAY
  4. GLUCOTROL [Concomitant]
     Dosage: 10MG THREE TIMES PER DAY
  5. VITAMINS [Concomitant]
  6. BENAZAPRIL [Concomitant]
  7. GLIPIZIDE [Concomitant]

REACTIONS (6)
  - BLOOD GLUCOSE DECREASED [None]
  - CONSTIPATION [None]
  - DIARRHOEA [None]
  - FATIGUE [None]
  - MACULAR OEDEMA [None]
  - RHINORRHOEA [None]
